FAERS Safety Report 13694991 (Version 1)
Quarter: 2017Q2

REPORT INFORMATION
  Report Type: Spontaneous
  Country: US (occurrence: US)
  Receive Date: 20170627
  Receipt Date: 20170627
  Transmission Date: 20170830
  Serious: Yes (Other)
  Sender: FDA-Public Use
  Company Number: PHHY2017US091086

PATIENT
  Age: 63 Year
  Sex: Female

DRUGS (1)
  1. METHYLPREDNISOLONE. [Suspect]
     Active Substance: METHYLPREDNISOLONE
     Indication: MYELITIS
     Route: 042

REACTIONS (4)
  - Paraparesis [Unknown]
  - Sensory loss [Unknown]
  - Condition aggravated [Unknown]
  - Dural arteriovenous fistula [Unknown]
